FAERS Safety Report 8077313-8 (Version None)
Quarter: 2012Q1

REPORT INFORMATION
  Report Type: 
  Country: None (occurrence: None)
  Receive Date: 20120127
  Receipt Date: 20120123
  Transmission Date: 20120608
  Serious: Yes (Other)
  Sender: FDA-Public Use
  Company Number: PHHY2011CA42064

PATIENT
  Sex: Male

DRUGS (2)
  1. CHEMOTHERAPEUTICS [Suspect]
     Dosage: UNK UKN, UNK
  2. ZOMETA [Suspect]
     Indication: RENAL CELL CARCINOMA
     Dosage: 4 MG EVERY 8 WEEKS
     Route: 042
     Dates: start: 20110511

REACTIONS (10)
  - JOINT SWELLING [None]
  - HYPOAESTHESIA [None]
  - LOWER LIMB FRACTURE [None]
  - WEIGHT DECREASED [None]
  - PAIN [None]
  - PAIN IN EXTREMITY [None]
  - OEDEMA PERIPHERAL [None]
  - BLOOD PRESSURE INCREASED [None]
  - BONE PAIN [None]
  - HYPERSENSITIVITY [None]
